FAERS Safety Report 9156739 (Version 1)
Quarter: 2013Q1

REPORT INFORMATION
  Report Type: Spontaneous
  Country: BE (occurrence: BE)
  Receive Date: 20130312
  Receipt Date: 20130312
  Transmission Date: 20140127
  Serious: Yes (Hospitalization)
  Sender: FDA-Public Use
  Company Number: BE-ELI_LILLY_AND_COMPANY-BE201303000097

PATIENT
  Age: 54 Year
  Sex: Female

DRUGS (3)
  1. CYMBALTA [Suspect]
     Indication: DEPRESSION
     Dosage: 60 MG, QD
     Route: 065
     Dates: end: 20130221
  2. DAFALGAN CODEIN [Concomitant]
     Dosage: UNK, UNKNOWN
     Route: 065
     Dates: end: 20130221
  3. DEANXIT [Concomitant]
     Dosage: UNK, UNKNOWN
     Route: 065
     Dates: end: 20130221

REACTIONS (1)
  - Hypokalaemia [Recovered/Resolved]
